FAERS Safety Report 24103276 (Version 1)
Quarter: 2024Q3

REPORT INFORMATION
  Report Type: Report from Study
  Country: US (occurrence: US)
  Receive Date: 20240717
  Receipt Date: 20240717
  Transmission Date: 20241016
  Serious: Yes (Other)
  Sender: ROCHE
  Company Number: US-ROCHE-10000020299

PATIENT

DRUGS (7)
  1. ATEZOLIZUMAB [Suspect]
     Active Substance: ATEZOLIZUMAB
     Indication: Neoplasm malignant
     Route: 065
  2. AVELUMAB [Suspect]
     Active Substance: AVELUMAB
     Indication: Neoplasm malignant
     Route: 065
  3. DURVALUMAB [Suspect]
     Active Substance: DURVALUMAB
     Indication: Neoplasm malignant
     Route: 065
  4. IPILIMUMAB [Suspect]
     Active Substance: IPILIMUMAB
     Indication: Neoplasm malignant
     Route: 065
  5. NIVOLUMAB [Suspect]
     Active Substance: NIVOLUMAB
     Indication: Neoplasm malignant
     Route: 065
  6. PEMBROLIZUMAB [Suspect]
     Active Substance: PEMBROLIZUMAB
     Indication: Neoplasm malignant
     Route: 065
  7. AXITINIB [Suspect]
     Active Substance: AXITINIB
     Indication: Neoplasm malignant
     Route: 065

REACTIONS (1)
  - Immune system disorder [Unknown]
